FAERS Safety Report 19896257 (Version 2)
Quarter: 2021Q4

REPORT INFORMATION
  Report Type: Spontaneous
  Country: JP (occurrence: JP)
  Receive Date: 20210929
  Receipt Date: 20211012
  Transmission Date: 20220303
  Serious: Yes (Life-Threatening, Hospitalization)
  Sender: FDA-Public Use
  Company Number: JP-DSJP-DSJ-2021-131579

PATIENT
  Age: 67 Year
  Sex: Male

DRUGS (6)
  1. OLMESARTAN MEDOXOMIL [Suspect]
     Active Substance: OLMESARTAN MEDOXOMIL
     Indication: Hypertension
     Dosage: 20 MG, QD
     Route: 048
     Dates: start: 20190227, end: 20210711
  2. OLMESARTAN MEDOXOMIL [Suspect]
     Active Substance: OLMESARTAN MEDOXOMIL
     Dosage: 10 MG, QD
     Route: 048
     Dates: start: 20210712, end: 20210727
  3. NEXIUM [Concomitant]
     Active Substance: ESOMEPRAZOLE MAGNESIUM
     Dosage: 20 MG, QD
     Route: 048
     Dates: start: 20181022
  4. BIOFERMIN [BACILLUS SUBTILIS;ENTEROCOCCUS FAECALIS;LACTOBACILLUS ACIDO [Concomitant]
     Dosage: 3 DF, TID
     Route: 048
     Dates: start: 20200817
  5. FEBUXOSTAT [Concomitant]
     Active Substance: FEBUXOSTAT
     Dosage: 20 MG, QD
     Route: 048
     Dates: start: 20190227
  6. URSODIOL [Concomitant]
     Active Substance: URSODIOL
     Dosage: 300 MG, TID
     Route: 048
     Dates: start: 20200817

REACTIONS (3)
  - Hypoglycaemia [Recovered/Resolved]
  - Hypoglycaemia [Recovered/Resolved]
  - Hypoglycaemia [Recovered/Resolved]

NARRATIVE: CASE EVENT DATE: 20190724
